FAERS Safety Report 9053991 (Version 1)
Quarter: 2013Q1

REPORT INFORMATION
  Report Type: Spontaneous
  Country: US (occurrence: None)
  Receive Date: 20130201
  Receipt Date: 20130201
  Transmission Date: 20140127
  Serious: Yes (Hospitalization, Other)
  Sender: FDA-Public Use
  Company Number: None

PATIENT
  Age: 86 Year
  Sex: Male
  Weight: 63.7 kg

DRUGS (8)
  1. LEVOFLOXACIN [Suspect]
     Route: 042
     Dates: start: 20120612
  2. ENOXAPARIN [Concomitant]
  3. HYDROMORPHONE 1-2 MG IV EVERY 4 HOURS AS NEEDED [Concomitant]
  4. HYDROMORPHONE 2 MG IV ONCE [Concomitant]
  5. SODIUM CHLORIDE 0.9% 1000 ML IV ONCE [Concomitant]
  6. SODIUM CHLORIDE 0.9% 100 ML/HOUR IV [Concomitant]
  7. NITROGLYCERIN 0.4 MG SUBLINGUAL EVERY FIVE MINUTES (X 3) AS NEEDED [Concomitant]
  8. PNEUMOCOCCAL VACCINE 23-VALENT 0.5 ML IM INJECTION ONCE [Concomitant]

REACTIONS (5)
  - Pollakiuria [None]
  - Presyncope [None]
  - Tremor [None]
  - Asthenia [None]
  - Toxic epidermal necrolysis [None]
